FAERS Safety Report 4455972-6 (Version None)
Quarter: 2004Q3

REPORT INFORMATION
  Report Type: 
  Country: None (occurrence: None)
  Receive Date: 20040922
  Receipt Date: 20040722
  Transmission Date: 20050211
  Serious: Yes (Hospitalization)
  Sender: FDA-Public Use
  Company Number: 2004JP001388

PATIENT
  Age: 60 Year
  Sex: Male

DRUGS (3)
  1. SAWACILLIN [Suspect]
     Dosage: 750MG TWICE PER DAY
     Route: 048
     Dates: start: 20040709, end: 20040712
  2. OMEPRAL [Suspect]
     Dosage: 20MG TWICE PER DAY
     Route: 048
     Dates: start: 20040709, end: 20040713
  3. CLARITH [Suspect]
     Dosage: 750MG TWICE PER DAY
     Route: 048
     Dates: start: 20040709, end: 20040712

REACTIONS (4)
  - CHOLELITHIASIS [None]
  - LIVER DISORDER [None]
  - PANCREATIC DISORDER [None]
  - PRURITUS [None]
